FAERS Safety Report 6356989-7 (Version None)
Quarter: 2009Q3

REPORT INFORMATION
  Report Type: 
  Country: None (occurrence: None)
  Receive Date: 20090915
  Receipt Date: 20090911
  Transmission Date: 20100115
  Serious: Yes (Hospitalization)
  Sender: FDA-Public Use
  Company Number: FR-ABBOTT-09P-056-0596488-00

PATIENT
  Age: 76 Year
  Sex: Male

DRUGS (2)
  1. LIPANTHYL [Suspect]
     Indication: DYSLIPIDAEMIA
     Route: 048
     Dates: start: 19960101, end: 20050101
  2. TAHOR [Suspect]
     Indication: DRUG USE FOR UNKNOWN INDICATION
     Route: 048
     Dates: start: 20050101, end: 20090606

REACTIONS (3)
  - DRY MOUTH [None]
  - MYALGIA [None]
  - SICCA SYNDROME [None]
